FAERS Safety Report 10804025 (Version 1)
Quarter: 2015Q1

REPORT INFORMATION
  Report Type: Spontaneous
  Country: US (occurrence: US)
  Receive Date: 20150217
  Receipt Date: 20150217
  Transmission Date: 20150721
  Serious: Yes (Other)
  Sender: FDA-Public Use
  Company Number: US-RB-073143-15

PATIENT
  Age: 3 Year
  Sex: Female

DRUGS (3)
  1. CHILDRENS MUCINEX MULTI-SYMPTOM COLD [Suspect]
     Active Substance: DEXTROMETHORPHAN HYDROBROMIDE\GUAIFENESIN\PHENYLEPHRINE HYDROCHLORIDE
     Indication: COUGH
     Dosage: .
     Route: 065
     Dates: start: 20150203
  2. CHILDRENS MUCINEX MULTI-SYMPTOM COLD [Suspect]
     Active Substance: DEXTROMETHORPHAN HYDROBROMIDE\GUAIFENESIN\PHENYLEPHRINE HYDROCHLORIDE
     Indication: RESPIRATORY TRACT CONGESTION
     Dosage: .
     Route: 065
     Dates: start: 20150203
  3. CHILDRENS MUCINEX MULTI-SYMPTOM COLD [Suspect]
     Active Substance: DEXTROMETHORPHAN HYDROBROMIDE\GUAIFENESIN\PHENYLEPHRINE HYDROCHLORIDE
     Indication: RESPIRATORY TRACT CONGESTION
     Dosage: .
     Route: 065
     Dates: start: 20150203

REACTIONS (3)
  - Drug administered to patient of inappropriate age [Not Recovered/Not Resolved]
  - Haematuria [Not Recovered/Not Resolved]
  - Chromaturia [Not Recovered/Not Resolved]

NARRATIVE: CASE EVENT DATE: 20150203
